FAERS Safety Report 17790735 (Version 1)
Quarter: 2020Q2

REPORT INFORMATION
  Report Type: Spontaneous
  Country: US (occurrence: US)
  Receive Date: 20200513
  Receipt Date: 20200513
  Transmission Date: 20200714
  Serious: No
  Sender: FDA-Public Use
  Company Number: None

PATIENT
  Age: 24 Year
  Sex: Male
  Weight: 116 kg

DRUGS (2)
  1. ERENUMAB-AOOE (ERENUMAB-AOOE 70MG/ML  AUTOINJECTOR, 1ML) [Suspect]
     Active Substance: ERENUMAB-AOOE
     Indication: MIGRAINE
  2. ERENUMAB-AOOE (ERENUMAB-AOOE 70MG/M L AUTOINJECTOR, 1ML) [Suspect]
     Active Substance: ERENUMAB-AOOE
     Indication: PAIN
     Route: 058
     Dates: start: 20200409, end: 20200409

REACTIONS (2)
  - Vision blurred [None]
  - Headache [None]

NARRATIVE: CASE EVENT DATE: 20200505
